FAERS Safety Report 4835235-7 (Version None)
Quarter: 2005Q4

REPORT INFORMATION
  Report Type: 
  Country: None (occurrence: None)
  Receive Date: 20051122
  Receipt Date: 20051114
  Transmission Date: 20060501
  Serious: Yes (Other)
  Sender: FDA-Public Use
  Company Number: US-MERCK-0511USA02610

PATIENT
  Sex: Female

DRUGS (1)
  1. VIOXX [Suspect]
     Route: 048

REACTIONS (10)
  - ADVERSE EVENT [None]
  - ANXIETY [None]
  - CARDIOVASCULAR DISORDER [None]
  - CEREBROVASCULAR ACCIDENT [None]
  - DEEP VEIN THROMBOSIS [None]
  - EMBOLISM VENOUS [None]
  - EMOTIONAL DISTRESS [None]
  - PULMONARY EMBOLISM [None]
  - RENAL FAILURE [None]
  - THROMBOSIS [None]
